FAERS Safety Report 17279606 (Version 2)
Quarter: 2020Q4

REPORT INFORMATION
  Report Type: Report from Study
  Country: US (occurrence: US)
  Receive Date: 20200116
  Receipt Date: 20201224
  Transmission Date: 20210113
  Serious: Yes (Other)
  Sender: FDA-Public Use
  Company Number: US-B.I. PHARMACEUTICALS,INC./RIDGEFIELD-2020-US-001783

PATIENT
  Age: 74 Year
  Sex: Female

DRUGS (1)
  1. OFEV [Suspect]
     Active Substance: NINTEDANIB
     Indication: IDIOPATHIC PULMONARY FIBROSIS
     Dosage: 100MG DAILY
     Dates: start: 201603

REACTIONS (4)
  - Pancreatitis [Unknown]
  - Pancreatic enzymes decreased [Unknown]
  - Diarrhoea [Unknown]
  - Pancreatic calcification [Unknown]

NARRATIVE: CASE EVENT DATE: 2019
